FAERS Safety Report 5270836-6 (Version None)
Quarter: 2007Q1

REPORT INFORMATION
  Report Type: 
  Country: None (occurrence: None)
  Receive Date: 20061214
  Receipt Date: 20051107
  Transmission Date: 20070707
  Serious: Yes (Other)
  Sender: FDA-Public Use
  Company Number: 2005133668

PATIENT
  Age: 56 Year
  Sex: Male

DRUGS (6)
  1. BEXTRA [Suspect]
     Indication: ARTHRALGIA
     Dosage: UNK (1 IN 1 D); ORAL
     Route: 048
     Dates: start: 20041001, end: 20041001
  2. THYOID (THYROID) [Concomitant]
  3. LIPITOR [Concomitant]
  4. LOPRESSOR [Concomitant]
  5. ALEVE [Concomitant]
  6. VITAMIN B12 [Concomitant]

REACTIONS (6)
  - BLISTER [None]
  - ERYTHEMA MULTIFORME [None]
  - PRURITUS [None]
  - RASH [None]
  - SKIN EXFOLIATION [None]
  - URTICARIA [None]
